FAERS Safety Report 20699492 (Version 2)
Quarter: 2022Q2

REPORT INFORMATION
  Report Type: Spontaneous
  Country: IE (occurrence: IE)
  Receive Date: 20220412
  Receipt Date: 20220506
  Transmission Date: 20220721
  Serious: Yes (Death, Life-Threatening, Hospitalization, Other)
  Sender: FDA-Public Use
  Company Number: IE-NOVARTISPH-NVSC2022IE074564

PATIENT
  Sex: Male
  Weight: 83 kg

DRUGS (5)
  1. TACROLIMUS [Interacting]
     Active Substance: TACROLIMUS
     Indication: Lung transplant
     Dosage: UNK
     Route: 065
  2. CLARITHROMYCIN [Interacting]
     Active Substance: CLARITHROMYCIN
     Indication: Evidence based treatment
     Dosage: UNK (UNKNOWN FREQ)
     Route: 065
  3. PROGRAF [Interacting]
     Active Substance: TACROLIMUS
     Indication: Lung transplant
     Dosage: UNK UNK, BID (1 MG IN THE MORNING AND 1.5 MG IN THE EVENING)
     Route: 065
     Dates: start: 20140406
  4. APIXABAN [Concomitant]
     Active Substance: APIXABAN
     Indication: Product used for unknown indication
     Dosage: 5 MG
     Route: 048
  5. APIXABAN [Concomitant]
     Active Substance: APIXABAN
     Dosage: 2.5 MG, BID (REDUCED DOSE)
     Route: 048

REACTIONS (4)
  - COVID-19 [Fatal]
  - Acute kidney injury [Unknown]
  - Immunosuppressant drug level increased [Unknown]
  - Drug interaction [Unknown]
